FAERS Safety Report 17450298 (Version 1)
Quarter: 2020Q1

REPORT INFORMATION
  Report Type: Report from Study
  Country: JP (occurrence: JP)
  Receive Date: 20200224
  Receipt Date: 20200224
  Transmission Date: 20200409
  Serious: Yes (Death, Other)
  Sender: FDA-Public Use
  Company Number: JP-ACCORD-172993

PATIENT
  Age: 57 Year
  Sex: Male

DRUGS (1)
  1. TEMOZOLOMIDE. [Suspect]
     Active Substance: TEMOZOLOMIDE
     Indication: GLIOBLASTOMA
     Dosage: 5 DAYS TMZ (150 MG/M2) EVERY 28-DAY CYCLE, 3 CYCLES
     Route: 048

REACTIONS (2)
  - Pneumonia staphylococcal [Fatal]
  - Lymphopenia [Recovered/Resolved]
